FAERS Safety Report 18633775 (Version 4)
Quarter: 2021Q4

REPORT INFORMATION
  Report Type: Spontaneous
  Country: US (occurrence: US)
  Receive Date: 20201218
  Receipt Date: 20211123
  Transmission Date: 20220303
  Serious: Yes (Other)
  Sender: FDA-Public Use
  Company Number: US-TEVA-2020-US-1859480

PATIENT
  Age: 80 Year
  Sex: Male

DRUGS (19)
  1. VALSARTAN [Suspect]
     Active Substance: VALSARTAN
     Indication: Hypertension
     Dosage: 320 MILLIGRAM DAILY; DOSAGE: 320MG/Q.D
     Route: 048
     Dates: start: 20151027, end: 20160125
  2. VALSARTAN [Suspect]
     Active Substance: VALSARTAN
     Indication: Hypertension
     Dosage: 320 MILLIGRAM DAILY; DOSAGE: 320 MG/Q.D
     Route: 048
     Dates: start: 20141014, end: 20150211
  3. VALSARTAN [Suspect]
     Active Substance: VALSARTAN
     Dosage: 320 MILLIGRAM DAILY; DOSAGE: 320 MG/QD.
     Route: 048
     Dates: start: 20150211, end: 20151015
  4. VALSARTAN [Suspect]
     Active Substance: VALSARTAN
     Indication: Hypertension
     Dosage: 320 MILLIGRAM DAILY; DOSAGE: 320MG/QD
     Route: 048
     Dates: start: 20140715, end: 20150308
  5. VALSARTAN [Suspect]
     Active Substance: VALSARTAN
     Indication: Hypertension
     Dosage: 320 MILLIGRAM DAILY; DOSAGE: 320MG/QD
     Route: 048
     Dates: start: 20160419, end: 20170717
  6. VALSARTAN [Suspect]
     Active Substance: VALSARTAN
     Dosage: 320 MILLIGRAM DAILY; DOSAGE: 320MG/QD
     Route: 048
     Dates: start: 20160617, end: 20160915
  7. DIOVAN [Suspect]
     Active Substance: VALSARTAN
     Indication: Hypertension
     Dosage: 320 MILLIGRAM DAILY; DOSAGE: 320 MG/QD.
     Route: 048
     Dates: start: 20070424, end: 20111212
  8. DIOVAN [Suspect]
     Active Substance: VALSARTAN
     Dosage: 320 MILLIGRAM DAILY; DOSAGE: 320 MG/QD.
     Route: 048
     Dates: start: 20120626, end: 20120912
  9. DIOVAN [Suspect]
     Active Substance: VALSARTAN
     Dosage: 320 MILLIGRAM DAILY; DOSAGE: 320 MG/QD.
     Route: 048
     Dates: start: 20120108, end: 20140521
  10. VALSARTAN [Suspect]
     Active Substance: VALSARTAN
     Indication: Hypertension
     Dosage: 320 MILLIGRAM DAILY; DOSAGE: 320MG/QD
     Route: 048
     Dates: start: 20160310, end: 20160609
  11. METOPROLOL [Concomitant]
     Active Substance: METOPROLOL
     Indication: Hypertension
     Dosage: 50 MILLIGRAM DAILY; DOSAGE: 50MG/Q.D EXTENDED RELEASE TABLET
     Route: 048
     Dates: start: 20071016, end: 2012
  12. METOPROLOL [Concomitant]
     Active Substance: METOPROLOL
     Indication: Angina pectoris
  13. LIPITOR [Concomitant]
     Active Substance: ATORVASTATIN CALCIUM
     Indication: Hypertension
     Dosage: 20 MILLIGRAM DAILY;
     Route: 048
  14. ASPIRIN [Concomitant]
     Active Substance: ASPIRIN
     Indication: Hypertension
     Route: 065
  15. ASPIRIN [Concomitant]
     Active Substance: ASPIRIN
     Indication: Coronary artery disease
     Dosage: DOSAGE: 80MG/DAY
     Route: 065
     Dates: start: 2007
  16. IMODIUM [Concomitant]
     Active Substance: LOPERAMIDE HYDROCHLORIDE
     Route: 065
  17. LASIX [Concomitant]
     Active Substance: FUROSEMIDE
     Dosage: 20 MILLIGRAM DAILY;
     Route: 048
  18. CREON [Concomitant]
     Active Substance: PANCRELIPASE AMYLASE\PANCRELIPASE LIPASE\PANCRELIPASE PROTEASE
     Dosage: 6000 UNITS, 1 CAPSULE BY MOUTH 3 TIMES DAILY BEFORE MEALS
     Route: 048
  19. PANTOPRAZOLE SODIUM [Concomitant]
     Active Substance: PANTOPRAZOLE SODIUM
     Indication: Underweight
     Dosage: 40 MILLIGRAM DAILY; ENTERIC COATED TABLET
     Route: 048

REACTIONS (1)
  - Ductal adenocarcinoma of pancreas [Unknown]
